FAERS Safety Report 19239691 (Version 8)
Quarter: 2022Q2

REPORT INFORMATION
  Report Type: Report from Study
  Country: US (occurrence: US)
  Receive Date: 20210510
  Receipt Date: 20220405
  Transmission Date: 20220721
  Serious: No
  Sender: FDA-Public Use
  Company Number: NVSC2021US098096

PATIENT
  Sex: Male

DRUGS (2)
  1. ENTRESTO [Suspect]
     Active Substance: SACUBITRIL\VALSARTAN
     Indication: Product used for unknown indication
     Dosage: UNK
     Route: 065
  2. ENTRESTO [Suspect]
     Active Substance: SACUBITRIL\VALSARTAN
     Route: 065

REACTIONS (13)
  - Weight increased [Unknown]
  - Peripheral swelling [Unknown]
  - Genital swelling [Unknown]
  - Arthralgia [Unknown]
  - Neuralgia [Unknown]
  - Throat clearing [Unknown]
  - Dust allergy [Unknown]
  - Nasopharyngitis [Unknown]
  - Decreased appetite [Unknown]
  - Oropharyngeal pain [Unknown]
  - Head discomfort [Unknown]
  - Weight decreased [Unknown]
  - Flatulence [Unknown]
